FAERS Safety Report 5840945-9 (Version None)
Quarter: 2008Q3

REPORT INFORMATION
  Report Type: 
  Country: None (occurrence: None)
  Receive Date: 20080811
  Receipt Date: 20080730
  Transmission Date: 20090109
  Serious: Yes (Other)
  Sender: FDA-Public Use
  Company Number: US-PFIZER INC-2008064209

PATIENT
  Sex: Female
  Weight: 95.5 kg

DRUGS (2)
  1. NAVANE [Suspect]
     Indication: SCHIZOPHRENIA
  2. DRUG, UNSPECIFIED [Suspect]

REACTIONS (1)
  - MOVEMENT DISORDER [None]
